FAERS Safety Report 25235601 (Version 2)
Quarter: 2025Q2

REPORT INFORMATION
  Report Type: Spontaneous
  Country: JP (occurrence: JP)
  Receive Date: 20250424
  Receipt Date: 20250508
  Transmission Date: 20250716
  Serious: Yes (Other)
  Sender: FERRING
  Company Number: JP-ferring-EVA202500567FERRINGPH

PATIENT

DRUGS (2)
  1. NOCDURNA [Suspect]
     Active Substance: DESMOPRESSIN ACETATE
     Indication: Nocturia
     Dosage: 50 UG, DAILY
     Route: 048
     Dates: start: 202310, end: 20250416
  2. NOCDURNA [Suspect]
     Active Substance: DESMOPRESSIN ACETATE
     Dosage: 50 UG, DAILY
     Route: 048
     Dates: start: 20250426

REACTIONS (2)
  - Sudden hearing loss [Recovered/Resolved]
  - Viral infection [Unknown]

NARRATIVE: CASE EVENT DATE: 20250415
